FAERS Safety Report 9055464 (Version 1)
Quarter: 2013Q1

REPORT INFORMATION
  Report Type: Spontaneous
  Country: US (occurrence: US)
  Receive Date: 20130206
  Receipt Date: 20130206
  Transmission Date: 20140127
  Serious: No
  Sender: FDA-Public Use
  Company Number: US-PFIZER INC-2013047350

PATIENT
  Sex: Female

DRUGS (2)
  1. ADVIL [Suspect]
     Indication: MUSCLE SPASMS
     Dosage: 400 MG (TWO TABLETS OF 200MG), ONCE
     Dates: start: 20130204
  2. CLARINEX [Concomitant]
     Indication: HYPERSENSITIVITY
     Dosage: 5 MG, DAILY

REACTIONS (4)
  - Swollen tongue [Recovering/Resolving]
  - Palpitations [Recovering/Resolving]
  - Erythema [Recovering/Resolving]
  - Pruritus [Recovering/Resolving]
